FAERS Safety Report 6876794-2 (Version None)
Quarter: 2010Q3

REPORT INFORMATION
  Report Type: 
  Country: None (occurrence: None)
  Receive Date: 20100727
  Receipt Date: 20100715
  Transmission Date: 20110219
  Serious: Yes (Hospitalization)
  Sender: FDA-Public Use
  Company Number: PHHY2010FR46712

PATIENT
  Sex: Male

DRUGS (7)
  1. VOLTAREN [Suspect]
     Indication: BONE PAIN
     Dosage: 75 MG, QD
     Route: 048
     Dates: start: 20100512, end: 20100519
  2. LANSOPRAZOLE [Suspect]
     Dosage: 30 MG, QD
     Route: 048
     Dates: start: 20100512, end: 20100519
  3. GLUCOPHAGE [Concomitant]
     Dosage: 500 MG
     Route: 048
  4. GLUCOPHAGE [Concomitant]
     Dosage: 850 MG
     Route: 048
  5. MICARDIS [Concomitant]
     Dosage: 80 MG
     Route: 048
  6. INDAPAMIDE [Concomitant]
     Dosage: 1.5 MG
     Route: 048
  7. TAHOR [Concomitant]
     Dosage: 40 MG
     Route: 048

REACTIONS (11)
  - ASTHENIA [None]
  - CHILLS [None]
  - DRUG RASH WITH EOSINOPHILIA AND SYSTEMIC SYMPTOMS [None]
  - EOSINOPHILIA [None]
  - FACE OEDEMA [None]
  - HYPERTHERMIA [None]
  - OEDEMA PERIPHERAL [None]
  - PLEURAL EFFUSION [None]
  - PRURITUS [None]
  - PURPURA [None]
  - RASH [None]
